FAERS Safety Report 10083500 (Version 1)
Quarter: 2014Q2

REPORT INFORMATION
  Report Type: Spontaneous
  Country: US (occurrence: None)
  Receive Date: 20140416
  Receipt Date: 20140416
  Transmission Date: 20141212
  Serious: Yes (Hospitalization)
  Sender: FDA-Public Use
  Company Number: None

PATIENT
  Age: 9 Year
  Sex: Female
  Weight: 47.63 kg

DRUGS (1)
  1. SULFAMETHOXAZOLE-TMP DS [Suspect]
     Indication: URINARY TRACT INFECTION
     Dosage: TWICE DAILY, TAKEN BY MOUTH
     Route: 048

REACTIONS (5)
  - Headache [None]
  - Neck pain [None]
  - Decreased appetite [None]
  - Vomiting [None]
  - Eye pruritus [None]
